FAERS Safety Report 16747307 (Version 1)
Quarter: 2019Q3

REPORT INFORMATION
  Report Type: Spontaneous
  Country: US (occurrence: US)
  Receive Date: 20190827
  Receipt Date: 20190827
  Transmission Date: 20191005
  Serious: Yes (Death)
  Sender: FDA-Public Use
  Company Number: US-ARRAY-2019-06208

PATIENT

DRUGS (6)
  1. MEKTOVI [Suspect]
     Active Substance: BINIMETINIB
     Indication: RECTOSIGMOID CANCER
     Dosage: 45 MG, BID
     Route: 048
     Dates: end: 2019
  2. TRIAMCINOLONE [Concomitant]
     Active Substance: TRIAMCINOLONE
     Indication: PRODUCT USED FOR UNKNOWN INDICATION
  3. DOXYCYCLINE. [Concomitant]
     Active Substance: DOXYCYCLINE
     Indication: PRODUCT USED FOR UNKNOWN INDICATION
  4. CLINDAMYCIN. [Concomitant]
     Active Substance: CLINDAMYCIN
     Indication: PRODUCT USED FOR UNKNOWN INDICATION
  5. HYDROCORTISONE. [Concomitant]
     Active Substance: HYDROCORTISONE
     Indication: PRODUCT USED FOR UNKNOWN INDICATION
  6. BRAFTOVI [Suspect]
     Active Substance: ENCORAFENIB
     Indication: RECTOSIGMOID CANCER
     Dosage: 300 MG, QD
     Route: 048
     Dates: end: 2019

REACTIONS (2)
  - Product use in unapproved indication [Unknown]
  - Death [Fatal]

NARRATIVE: CASE EVENT DATE: 2019
